FAERS Safety Report 10222465 (Version 1)
Quarter: 2014Q2

REPORT INFORMATION
  Report Type: Spontaneous
  Country: US (occurrence: US)
  Receive Date: 20140606
  Receipt Date: 20140606
  Transmission Date: 20141212
  Serious: Yes (Death, Hospitalization)
  Sender: FDA-Public Use
  Company Number: US-B.I. PHARMACEUTICALS,INC./RIDGEFIELD-2014-BI-25024BP

PATIENT
  Age: 83 Year
  Sex: Male

DRUGS (1)
  1. PRADAXA [Suspect]
     Indication: PRODUCT USED FOR UNKNOWN INDICATION
     Route: 065
     Dates: start: 20130221, end: 20130403

REACTIONS (2)
  - Gastrointestinal haemorrhage [Fatal]
  - Haemorrhagic anaemia [Fatal]
